FAERS Safety Report 18954378 (Version 3)
Quarter: 2021Q3

REPORT INFORMATION
  Report Type: Spontaneous
  Country: US (occurrence: US)
  Receive Date: 20210301
  Receipt Date: 20210929
  Transmission Date: 20211014
  Serious: No
  Sender: FDA-Public Use
  Company Number: US-PFIZER INC-2021160955

PATIENT
  Age: 84 Year
  Sex: Female

DRUGS (1)
  1. FRAGMIN [Suspect]
     Active Substance: DALTEPARIN SODIUM
     Indication: BLOOD DISORDER
     Dosage: 15000 IU (15,000 IU/0.6ML)
     Route: 058

REACTIONS (1)
  - Needle issue [Unknown]
